FAERS Safety Report 7080750-1 (Version None)
Quarter: 2010Q4

REPORT INFORMATION
  Report Type: 
  Country: None (occurrence: None)
  Receive Date: 20101103
  Receipt Date: 20101021
  Transmission Date: 20110411
  Serious: Yes (Hospitalization, Other)
  Sender: FDA-Public Use
  Company Number: US-ACTELION-A-US2010-40914

PATIENT
  Sex: Male

DRUGS (1)
  1. BOSENTAN TABLET UNKNOWN US MG [Suspect]
     Indication: PULMONARY ARTERIAL HYPERTENSION
     Dosage: UNK
     Route: 048
     Dates: start: 20061026

REACTIONS (4)
  - DYSPNOEA [None]
  - FALL [None]
  - PNEUMONIA [None]
  - SPINAL FRACTURE [None]
